FAERS Safety Report 15298812 (Version 1)
Quarter: 2018Q3

REPORT INFORMATION
  Report Type: Spontaneous
  Country: US (occurrence: US)
  Receive Date: 20180821
  Receipt Date: 20180821
  Transmission Date: 20181010
  Serious: Yes (Other)
  Sender: FDA-Public Use
  Company Number: US-ZYDUS-021195

PATIENT
  Age: 64 Year
  Sex: Female

DRUGS (5)
  1. KETOCONAZOLE. [Interacting]
     Active Substance: KETOCONAZOLE
     Indication: ECZEMA
     Route: 061
  2. TRIAMCINOLONE [Interacting]
     Active Substance: TRIAMCINOLONE
     Indication: ECZEMA
     Route: 061
  3. FLUOCINONIDE. [Interacting]
     Active Substance: FLUOCINONIDE
     Indication: ECZEMA
     Route: 061
  4. ECONAZOLE [Interacting]
     Active Substance: ECONAZOLE
     Indication: ECZEMA
     Route: 061
  5. CLOBETASOL [Suspect]
     Active Substance: CLOBETASOL
     Indication: ECZEMA
     Route: 061

REACTIONS (4)
  - Hypothalamic pituitary adrenal axis suppression [Recovered/Resolved]
  - Drug interaction [Unknown]
  - Adrenal insufficiency [Recovered/Resolved]
  - Confusional state [Recovered/Resolved]
